FAERS Safety Report 15222898 (Version 3)
Quarter: 2021Q1

REPORT INFORMATION
  Report Type: Spontaneous
  Country: US (occurrence: US)
  Receive Date: 20180731
  Receipt Date: 20210223
  Transmission Date: 20210419
  Serious: Yes (Hospitalization, Other)
  Sender: FDA-Public Use
  Company Number: US-ALEXION PHARMACEUTICALS INC-A201809469

PATIENT
  Age: 35 Year
  Sex: Male
  Weight: 86.2 kg

DRUGS (1)
  1. SOLIRIS [Suspect]
     Active Substance: ECULIZUMAB
     Indication: ATYPICAL HAEMOLYTIC URAEMIC SYNDROME
     Dosage: 1200 MG, Q2W
     Route: 065
     Dates: start: 201603

REACTIONS (3)
  - Malaise [Unknown]
  - Subarachnoid haemorrhage [Unknown]
  - Aneurysm ruptured [Unknown]

NARRATIVE: CASE EVENT DATE: 201807
